FAERS Safety Report 22533639 (Version 1)
Quarter: 2023Q2

REPORT INFORMATION
  Report Type: Spontaneous
  Country: US (occurrence: US)
  Receive Date: 20230608
  Receipt Date: 20230608
  Transmission Date: 20230722
  Serious: No
  Sender: FDA-Public Use
  Company Number: US-DENDREON PHARMACEUTICAL LLC-2022DEN000317

PATIENT

DRUGS (4)
  1. PROVENGE [Suspect]
     Active Substance: SIPULEUCEL-T
     Indication: Prostate cancer metastatic
     Dosage: DOSE 1
     Route: 042
     Dates: start: 20171109, end: 20171109
  2. PROVENGE [Suspect]
     Active Substance: SIPULEUCEL-T
     Dosage: DOSE 2
     Route: 042
     Dates: start: 20171120, end: 20171120
  3. PROVENGE [Suspect]
     Active Substance: SIPULEUCEL-T
     Dosage: DOSE 3
     Route: 042
     Dates: start: 20171207, end: 20171207
  4. LISINOPRIL [Concomitant]
     Active Substance: LISINOPRIL
     Indication: Hypertension
     Dosage: UNK, UNKNOWN
     Route: 048

REACTIONS (3)
  - Fatigue [Recovered/Resolved]
  - Fatigue [Recovered/Resolved]
  - Fatigue [Recovered/Resolved]

NARRATIVE: CASE EVENT DATE: 20171109
